FAERS Safety Report 6584185-7 (Version None)
Quarter: 2010Q1

REPORT INFORMATION
  Report Type: 
  Country: None (occurrence: None)
  Receive Date: 20100213
  Receipt Date: 20100213
  Transmission Date: 20100710
  Serious: Yes (Death, Life-Threatening, Hospitalization)
  Sender: FDA-Public Use
  Company Number: None

PATIENT
  Sex: Male
  Weight: 78.8 kg

DRUGS (18)
  1. ONCASPAR [Suspect]
     Indication: ACUTE LYMPHOCYTIC LEUKAEMIA
     Dosage: 2,500 IU/KG ONCE PER CYCLE IV DRIP
     Route: 041
     Dates: start: 20091113, end: 20091113
  2. ONCASPAR [Suspect]
     Indication: ACUTE LYMPHOCYTIC LEUKAEMIA
     Dosage: 2,500 IU/KG ONCE PER CYCLE IV DRIP
     Route: 041
     Dates: start: 20091217
  3. ONCASPAR [Suspect]
     Indication: ACUTE LYMPHOCYTIC LEUKAEMIA
     Dosage: 2,500 IU/KG ONCE PER CYCLE IV DRIP
     Route: 041
     Dates: start: 20100114
  4. CALCIUM [Concomitant]
  5. CIPROFLOXACIN [Concomitant]
  6. DEXAMETHASONE [Concomitant]
  7. FIBER [Concomitant]
  8. FLUCONAZOLE [Concomitant]
  9. FLONASE [Concomitant]
  10. IMATINIB MESYLATE [Concomitant]
  11. PREVACID [Concomitant]
  12. CLARITIN [Concomitant]
  13. LORAZEPAM [Concomitant]
  14. METOPROLOL TARTRATE [Concomitant]
  15. MULTI-VITAMINS [Concomitant]
  16. COMPAZINE [Concomitant]
  17. TRIMETHOPRIM + SULFAMETHOXAZOLE [Concomitant]
  18. VALTREX [Concomitant]

REACTIONS (3)
  - CARDIAC ARREST [None]
  - CONTUSION [None]
  - SUBARACHNOID HAEMORRHAGE [None]
